FAERS Safety Report 12719241 (Version 2)
Quarter: 2016Q3

REPORT INFORMATION
  Report Type: Spontaneous
  Country: CN (occurrence: CN)
  Receive Date: 20160907
  Receipt Date: 20160914
  Transmission Date: 20161109
  Serious: Yes (Hospitalization, Other)
  Sender: FDA-Public Use
  Company Number: CN-ASTRAZENECA-2016SE88737

PATIENT
  Age: 51 Year
  Sex: Female

DRUGS (1)
  1. PULMICORT TURBUHALER [Suspect]
     Active Substance: BUDESONIDE
     Indication: ASTHMA
     Dosage: TWICE, ONE INHALATION FOR ONE TIME, TWO INHALATIONS (200 MICROGRAMS) IN TOTAL
     Route: 055
     Dates: start: 20160816, end: 20160817

REACTIONS (6)
  - Asthma [Recovering/Resolving]
  - Therapy cessation [Unknown]
  - Product use issue [Unknown]
  - Insomnia [Unknown]
  - Anxiety [Unknown]
  - Rhinitis allergic [Recovering/Resolving]

NARRATIVE: CASE EVENT DATE: 20160816
